FAERS Safety Report 6082521-1 (Version None)
Quarter: 2009Q1

REPORT INFORMATION
  Report Type: 
  Country: None (occurrence: None)
  Receive Date: 20090218
  Receipt Date: 20090209
  Transmission Date: 20090719
  Serious: Yes (Life-Threatening)
  Sender: FDA-Public Use
  Company Number: IN-WATSON-2009-00985

PATIENT
  Age: 7 Year
  Sex: Male

DRUGS (5)
  1. VECURONIUM BROMIDE (WATSON LABORATORIES) [Suspect]
     Indication: ANAESTHESIA
     Dosage: UNK
     Route: 066
  2. FENTANYL CITRATE [Suspect]
     Indication: ANALGESIA
     Dosage: UNK
     Route: 065
  3. THIOPENTONE                        /00053401/ [Suspect]
     Indication: ANAESTHESIA
     Dosage: UNK
  4. ISOFLURANE [Suspect]
     Indication: ANAESTHESIA
     Dosage: UNK
  5. NITROUS OXIDE [Suspect]
     Indication: ANAESTHESIA
     Dosage: UNK

REACTIONS (1)
  - TUMOUR LYSIS SYNDROME [None]
